FAERS Safety Report 15213330 (Version 1)
Quarter: 2018Q3

REPORT INFORMATION
  Report Type: Spontaneous
  Country: CZ (occurrence: CZ)
  Receive Date: 20180730
  Receipt Date: 20180730
  Transmission Date: 20181010
  Serious: Yes (Other)
  Sender: FDA-Public Use
  Company Number: CZ-ACCORD-070191

PATIENT
  Age: 44 Year
  Sex: Male

DRUGS (3)
  1. METHOTREXATE. [Suspect]
     Active Substance: METHOTREXATE
     Indication: IMMUNOSUPPRESSION
     Dosage: INITIALLY RECEIVED 10 MG PER OS?REDUCED THE DOSE TO 15 MG PER WEEK
     Route: 051
  2. PREDNISONE. [Suspect]
     Active Substance: PREDNISONE
     Indication: IMMUNOSUPPRESSION
  3. SECUKINUMAB. [Suspect]
     Active Substance: SECUKINUMAB
     Indication: PEMPHIGUS
     Dates: start: 201701

REACTIONS (3)
  - Psoriasis [Unknown]
  - Respiratory tract infection [Recovered/Resolved]
  - Alanine aminotransferase increased [Unknown]

NARRATIVE: CASE EVENT DATE: 201710
